FAERS Safety Report 10667409 (Version 2)
Quarter: 2015Q1

REPORT INFORMATION
  Report Type: Spontaneous
  Country: JP (occurrence: JP)
  Receive Date: 20141222
  Receipt Date: 20150106
  Transmission Date: 20150720
  Serious: No
  Sender: FDA-Public Use
  Company Number: JP-JNJFOC-20141207756

PATIENT

DRUGS (2)
  1. FENTANYL. [Suspect]
     Active Substance: FENTANYL
     Indication: GASTROINTESTINAL CARCINOMA
     Route: 062
  2. DUROTEP MT [Suspect]
     Active Substance: FENTANYL
     Indication: GASTROINTESTINAL CARCINOMA
     Route: 062

REACTIONS (4)
  - Drug prescribing error [Unknown]
  - Somnolence [Unknown]
  - Nausea [Unknown]
  - Constipation [Unknown]
